FAERS Safety Report 7540062-6 (Version None)
Quarter: 2011Q2

REPORT INFORMATION
  Report Type: 
  Country: None (occurrence: None)
  Receive Date: 20110610
  Receipt Date: 20110601
  Transmission Date: 20111010
  Serious: Yes (Life-Threatening, Hospitalization)
  Sender: FDA-Public Use
  Company Number: DE-TEVA-283823GER

PATIENT
  Sex: Male
  Weight: 69 kg

DRUGS (1)
  1. ZOLPIDEM [Suspect]
     Indication: SLEEP DISORDER
     Dosage: 70 MILLIGRAM;
     Route: 048

REACTIONS (2)
  - SINUS ARREST [None]
  - SINUS BRADYCARDIA [None]
